FAERS Safety Report 9936500 (Version 2)
Quarter: 2014Q1

REPORT INFORMATION
  Report Type: Spontaneous
  Country: US (occurrence: US)
  Receive Date: 20140228
  Receipt Date: 20140228
  Transmission Date: 20141002
  Serious: Yes (Hospitalization, Other)
  Sender: FDA-Public Use
  Company Number: US-AMGEN-USASP2014002638

PATIENT
  Age: 71 Year
  Sex: Female
  Weight: 81.63 kg

DRUGS (14)
  1. ENBREL [Suspect]
     Indication: PSORIATIC ARTHROPATHY
     Dosage: 50 MG, 2 TIMES/WK
     Route: 058
     Dates: start: 2010, end: 201401
  2. ENBREL [Suspect]
     Indication: PSORIASIS
     Dosage: UNK
     Route: 058
  3. LANTUS [Concomitant]
     Dosage: UNK
  4. SPIRIVA [Concomitant]
     Dosage: UNK
  5. FUROSEMIDE [Concomitant]
     Dosage: UNK
  6. MYRBETRIQ [Concomitant]
     Dosage: UNK
  7. POLYTRIM [Concomitant]
     Dosage: UNK
  8. DICLOFENAC SODIUM [Concomitant]
     Dosage: UNK
  9. PREDNISOLONE ACETATE [Concomitant]
     Dosage: UNK
  10. PREDNISONE [Concomitant]
     Dosage: UNK
  11. LISINOPRIL [Concomitant]
     Dosage: UNK
  12. LYRICA [Concomitant]
     Dosage: UNK
  13. SULFAMETHOXAZOLE AND TRIMETHOPRIM [Concomitant]
     Dosage: UNK
  14. DONEPEZIL HCL [Concomitant]
     Dosage: UNK

REACTIONS (2)
  - Pneumonia [Unknown]
  - Drug effect decreased [Unknown]
